FAERS Safety Report 8558599 (Version 2)
Quarter: 2012Q4

REPORT INFORMATION
  Report Type: 
  Country: US (occurrence: US)
  Receive Date: 20120511
  Receipt Date: 20120926
  Transmission Date: 20130627
  Serious: Yes (Other)
  Sender: FDA-Public Use
  Company Number: US-ROCHE-1066904

PATIENT
  Sex: Male
  Weight: 79.45 kg

DRUGS (5)
  1. ACCUTANE [Suspect]
     Indication: ACNE
     Route: 065
     Dates: start: 20010726, end: 20011026
  2. ACCUTANE [Suspect]
     Route: 065
     Dates: start: 20020102, end: 20020202
  3. ACCUTANE [Suspect]
     Route: 065
     Dates: start: 20021213, end: 20030113
  4. AMNESTEEM [Suspect]
     Indication: ACNE
     Route: 065
     Dates: start: 20030109, end: 20030208
  5. AMNESTEEM [Suspect]
     Route: 065
     Dates: start: 20030520, end: 20030620

REACTIONS (8)
  - Colitis ulcerative [Unknown]
  - Crohn^s disease [Unknown]
  - Inflammatory bowel disease [Unknown]
  - Irritable bowel syndrome [Unknown]
  - Anxiety [Unknown]
  - Depression [Unknown]
  - Intestinal haemorrhage [Unknown]
  - Mucosal dryness [Unknown]
